FAERS Safety Report 6861915-8 (Version None)
Quarter: 2010Q3

REPORT INFORMATION
  Report Type: 
  Country: None (occurrence: None)
  Receive Date: 20100720
  Receipt Date: 20100720
  Transmission Date: 20110219
  Serious: No
  Sender: FDA-Public Use
  Company Number: None

PATIENT
  Age: 42 Year
  Sex: Female
  Weight: 97.5234 kg

DRUGS (1)
  1. CYMBALTA [Suspect]
     Indication: MAJOR DEPRESSION
     Dosage: 1  60 MG DAILY SL
     Route: 060
     Dates: start: 20061025, end: 20100711

REACTIONS (19)
  - AGITATION [None]
  - CRYING [None]
  - DIARRHOEA [None]
  - FAMILY STRESS [None]
  - FEELING ABNORMAL [None]
  - FLUSHING [None]
  - HYPERACUSIS [None]
  - HYPERHIDROSIS [None]
  - IMPAIRED WORK ABILITY [None]
  - MIGRAINE [None]
  - MUSCLE TWITCHING [None]
  - NAUSEA [None]
  - PARAESTHESIA [None]
  - PERSONALITY CHANGE [None]
  - PHOTOPHOBIA [None]
  - SUICIDAL IDEATION [None]
  - VISION BLURRED [None]
  - VOMITING [None]
  - WITHDRAWAL SYNDROME [None]
